FAERS Safety Report 15812524 (Version 1)
Quarter: 2019Q1

REPORT INFORMATION
  Report Type: Spontaneous
  Country: US (occurrence: US)
  Receive Date: 20190111
  Receipt Date: 20190111
  Transmission Date: 20190417
  Serious: No
  Sender: FDA-Public Use
  Company Number: US-ALLERGAN-1840613US

PATIENT
  Sex: Female
  Weight: 77.6 kg

DRUGS (3)
  1. TOPROL XL [Concomitant]
     Active Substance: METOPROLOL SUCCINATE
  2. DALVANCE [Suspect]
     Active Substance: DALBAVANCIN
     Indication: CELLULITIS
     Dosage: 1000 MG, UNK
     Route: 042
     Dates: start: 20180817, end: 20180817
  3. DALVANCE [Suspect]
     Active Substance: DALBAVANCIN
     Dosage: 500 MG, UNK
     Route: 042
     Dates: start: 20180817, end: 20180817

REACTIONS (3)
  - Anxiety [Recovered/Resolved]
  - Dyspnoea [Recovered/Resolved]
  - Back pain [Recovered/Resolved]
